FAERS Safety Report 4665916-X (Version None)
Quarter: 2005Q2

REPORT INFORMATION
  Report Type: 
  Country: None (occurrence: None)
  Receive Date: 20050517
  Receipt Date: 20050505
  Transmission Date: 20051028
  Serious: Yes (Hospitalization)
  Sender: FDA-Public Use
  Company Number: 2005BI000362

PATIENT
  Age: 57 Year
  Sex: Female

DRUGS (10)
  1. AVONEX [Suspect]
     Indication: MULTIPLE SCLEROSIS
     Dosage: 30 UG; QW; IM
     Route: 030
     Dates: start: 20020401, end: 20041101
  2. AVONEX [Suspect]
     Indication: MULTIPLE SCLEROSIS
     Dosage: 30 UG; QW; IM
     Route: 030
     Dates: start: 20050202
  3. AMIODARONE [Concomitant]
  4. LASIX [Concomitant]
  5. ASPIRIN [Concomitant]
  6. VITAMIN B-12 [Concomitant]
  7. CLINDAMYCIN [Concomitant]
  8. PRILOSEC [Concomitant]
  9. INSULIN [Concomitant]
  10. ZOLOFT [Concomitant]

REACTIONS (27)
  - ALPHA 2 GLOBULIN INCREASED [None]
  - ANAEMIA [None]
  - ATRIAL FIBRILLATION [None]
  - ATRIAL FLUTTER [None]
  - CARDIAC FAILURE CONGESTIVE [None]
  - CELLULITIS [None]
  - COLONIC POLYP [None]
  - DEHYDRATION [None]
  - DEPRESSIVE SYMPTOM [None]
  - DIALYSIS [None]
  - DILATATION VENTRICULAR [None]
  - FLUID OVERLOAD [None]
  - HAEMODYNAMIC INSTABILITY [None]
  - HIATUS HERNIA [None]
  - HYPERPARATHYROIDISM SECONDARY [None]
  - INJECTION SITE CELLULITIS [None]
  - MALNUTRITION [None]
  - OEDEMA [None]
  - PNEUMONIA ASPIRATION [None]
  - RENAL FAILURE ACUTE [None]
  - RENAL TUBULAR NECROSIS [None]
  - THROMBOCYTOPENIA [None]
  - TRICUSPID VALVE INCOMPETENCE [None]
  - URINARY TRACT INFECTION FUNGAL [None]
  - VENTRICULAR DYSFUNCTION [None]
  - VITAMIN B12 DEFICIENCY [None]
  - WHITE BLOOD CELL COUNT DECREASED [None]
